FAERS Safety Report 5509753-2 (Version None)
Quarter: 2007Q4

REPORT INFORMATION
  Report Type: 
  Country: None (occurrence: None)
  Receive Date: 20071106
  Receipt Date: 20071025
  Transmission Date: 20080405
  Serious: Yes (Other)
  Sender: FDA-Public Use
  Company Number: 2007AP001049

PATIENT
  Age: 7 Year
  Sex: Female

DRUGS (1)
  1. MELOXICAM [Suspect]

REACTIONS (3)
  - NERVOUS SYSTEM DISORDER [None]
  - PERSONALITY CHANGE [None]
  - PHONOPHOBIA [None]
